FAERS Safety Report 4481178-0 (Version None)
Quarter: 2004Q4

REPORT INFORMATION
  Report Type: 
  Country: None (occurrence: None)
  Receive Date: 20041021
  Receipt Date: 20041011
  Transmission Date: 20050328
  Serious: Yes (Death)
  Sender: FDA-Public Use
  Company Number: DE-JNJFOC-20041005641

PATIENT
  Age: 36 Year
  Sex: Male

DRUGS (6)
  1. DOXIL [Suspect]
     Indication: KAPOSI'S SARCOMA
     Dosage: 10 MG X2 DOSES
     Route: 042
  2. RIFAMPICIN [Concomitant]
  3. CYCLOSERINE [Concomitant]
  4. CLOFAZIMINE [Concomitant]
  5. FLUCONAZOLE [Concomitant]
  6. ITRACONAZOLE [Concomitant]

REACTIONS (12)
  - BILIARY TRACT DISORDER [None]
  - CANDIDIASIS [None]
  - HEPATIC ENCEPHALOPATHY [None]
  - HEPATIC FIBROSIS [None]
  - HEPATIC NEOPLASM [None]
  - HEPATORENAL FAILURE [None]
  - NECROSIS [None]
  - PATHOGEN RESISTANCE [None]
  - SPLENOMEGALY [None]
  - SPUTUM CULTURE POSITIVE [None]
  - THROMBOCYTOPENIA [None]
  - TORULOPSIS INFECTION [None]
